FAERS Safety Report 23324662 (Version 1)
Quarter: 2023Q4

REPORT INFORMATION
  Report Type: Spontaneous
  Country: US (occurrence: US)
  Receive Date: 20231221
  Receipt Date: 20231221
  Transmission Date: 20240110
  Serious: No
  Sender: FDA-Public Use
  Company Number: US-BRISTOL-MYERS SQUIBB COMPANY-2023-185526

PATIENT
  Age: 34 Year
  Sex: Male

DRUGS (1)
  1. ZEPOSIA [Suspect]
     Active Substance: OZANIMOD HYDROCHLORIDE
     Indication: Product used for unknown indication
     Dosage: FREQ: ONE 0.23MG TABLET DAILY FOR FOUR DAYS, THEN ONE 0.46MG TABLET DAILY FOR THREE DAYS?STRENGTH: 0
     Route: 048

REACTIONS (1)
  - Treatment noncompliance [Unknown]
